FAERS Safety Report 9428927 (Version 1)
Quarter: 2013Q3

REPORT INFORMATION
  Report Type: Report from Study
  Country: US (occurrence: US)
  Receive Date: 20130730
  Receipt Date: 20130730
  Transmission Date: 20140515
  Serious: No
  Sender: FDA-Public Use
  Company Number: US-ABBOTT-12P-163-1009643-00

PATIENT
  Age: 43 Year
  Sex: Male

DRUGS (9)
  1. NIASPAN [Suspect]
     Indication: PRODUCT USED FOR UNKNOWN INDICATION
     Dosage: 1 DURING THE DAY FOR 1 MONTH
     Route: 048
  2. NIASPAN [Suspect]
     Dosage: AT BEDTIME
     Route: 048
  3. NIASPAN [Suspect]
     Dosage: AT BEDTIME
     Route: 048
  4. NIASPAN [Suspect]
     Dosage: AT BEDTIME
     Route: 048
  5. CRESTOR [Concomitant]
     Indication: PRODUCT USED FOR UNKNOWN INDICATION
     Route: 048
  6. ZETIA [Concomitant]
     Indication: PRODUCT USED FOR UNKNOWN INDICATION
     Route: 048
  7. JANUMET [Concomitant]
     Indication: PRODUCT USED FOR UNKNOWN INDICATION
     Route: 048
  8. ASPIRIN [Concomitant]
     Indication: PRODUCT USED FOR UNKNOWN INDICATION
     Route: 048
  9. OTHER UNKNOWN MEDICATIONS [Concomitant]
     Indication: PRODUCT USED FOR UNKNOWN INDICATION

REACTIONS (4)
  - Flushing [Recovered/Resolved]
  - Pruritus [Unknown]
  - Erythema [Unknown]
  - Burning sensation [Unknown]
